FAERS Safety Report 25444468 (Version 1)
Quarter: 2025Q2

REPORT INFORMATION
  Report Type: Report from Study
  Country: FR (occurrence: FR)
  Receive Date: 20250617
  Receipt Date: 20250617
  Transmission Date: 20250716
  Serious: Yes (Hospitalization, Other)
  Sender: AUROBINDO
  Company Number: FR-SUN PHARMACEUTICAL INDUSTRIES LTD-2022R1-341685

PATIENT
  Age: 64 Year
  Sex: Male
  Weight: 84 kg

DRUGS (10)
  1. AMIODARONE [Suspect]
     Active Substance: AMIODARONE
     Indication: Atrial fibrillation
     Route: 065
  2. AMLODIPINE [Suspect]
     Active Substance: AMLODIPINE BESYLATE
     Indication: Atrial fibrillation
     Route: 065
  3. GLICLAZIDE [Suspect]
     Active Substance: GLICLAZIDE
     Indication: Atrial fibrillation
     Route: 065
  4. PERINDOPRIL [Suspect]
     Active Substance: PERINDOPRIL
     Indication: Atrial fibrillation
     Route: 065
  5. RIVAROXABAN [Suspect]
     Active Substance: RIVAROXABAN
     Indication: Atrial fibrillation
     Route: 048
  6. ZOPICLONE [Suspect]
     Active Substance: ZOPICLONE
     Indication: Atrial fibrillation
     Route: 065
  7. ALPRAZOLAM [Suspect]
     Active Substance: ALPRAZOLAM
     Indication: Atrial fibrillation
     Route: 065
  8. ATROPINE [Concomitant]
     Active Substance: ATROPINE
     Indication: Product used for unknown indication
     Route: 065
  9. ISOPROTERENOL HYDROCHLORIDE [Concomitant]
     Active Substance: ISOPROTERENOL HYDROCHLORIDE
     Indication: Product used for unknown indication
     Route: 065
  10. NOREPINEPHRINE [Concomitant]
     Active Substance: NOREPINEPHRINE
     Indication: Product used for unknown indication
     Route: 065

REACTIONS (6)
  - Renal failure [Unknown]
  - Vasoplegia syndrome [Unknown]
  - Toxicity to various agents [Unknown]
  - Anticoagulation drug level increased [Unknown]
  - Intentional overdose [Unknown]
  - Suicide attempt [Unknown]
